FAERS Safety Report 11824485 (Version 2)
Quarter: 2015Q4

REPORT INFORMATION
  Report Type: Report from Study
  Country: US (occurrence: US)
  Receive Date: 20151210
  Receipt Date: 20151218
  Transmission Date: 20160305
  Serious: No
  Sender: FDA-Public Use
  Company Number: PHEH2015US025649

PATIENT
  Age: 60 Year
  Sex: Female

DRUGS (1)
  1. GILENYA [Suspect]
     Active Substance: FINGOLIMOD HYDROCHLORIDE
     Indication: PRODUCT USED FOR UNKNOWN INDICATION
     Route: 065
     Dates: start: 20151021

REACTIONS (5)
  - Hot flush [Unknown]
  - Paraesthesia [Unknown]
  - Depression [Unknown]
  - Multiple sclerosis relapse [Unknown]
  - Tremor [Unknown]

NARRATIVE: CASE EVENT DATE: 20151210
